FAERS Safety Report 20244539 (Version 1)
Quarter: 2021Q4

REPORT INFORMATION
  Report Type: Report from Study
  Country: GB (occurrence: GB)
  Receive Date: 20211229
  Receipt Date: 20211229
  Transmission Date: 20220303
  Serious: Yes (Hospitalization)
  Sender: FDA-Public Use
  Company Number: GB-CELLTRION INC.-2021GB017596

PATIENT

DRUGS (42)
  1. TRASTUZUMAB [Suspect]
     Active Substance: TRASTUZUMAB
     Indication: Breast cancer metastatic
     Dosage: 600 MG, EVERY 3 WEEKS (PHARMACEUTICAL DOSE FORM: 231)
     Route: 058
     Dates: start: 20180228
  2. CAPECITABINE [Suspect]
     Active Substance: CAPECITABINE
     Indication: Breast cancer metastatic
     Dosage: 2150 MG (PHARMACEUTICAL DOSE FORM: 245) (FREQUENCY: OTHER)
     Route: 048
     Dates: start: 20180411, end: 20180605
  3. CAPECITABINE [Suspect]
     Active Substance: CAPECITABINE
     Dosage: 2150 MG (PHARMACEUTICAL DOSE FORM: 245)
     Route: 048
     Dates: start: 20180411, end: 20180605
  4. CAPECITABINE [Suspect]
     Active Substance: CAPECITABINE
     Dosage: 2150 MG (PHARMACEUTICAL DOSE FORM: 245)
     Route: 048
     Dates: start: 20180411, end: 20180605
  5. CAPECITABINE [Suspect]
     Active Substance: CAPECITABINE
     Dosage: 4600 MG, QD (PHARMACEUTICAL DOSE FORM: 245)
     Route: 048
     Dates: start: 20180228, end: 20180313
  6. CAPECITABINE [Suspect]
     Active Substance: CAPECITABINE
     Dosage: 4600 MG, QD (PHARMACEUTICAL DOSE FORM: 245)
     Route: 048
     Dates: start: 20180228, end: 20180313
  7. CAPECITABINE [Suspect]
     Active Substance: CAPECITABINE
     Dosage: 4600 MG, QD (PHARMACEUTICAL DOSE FORM: 245)
     Route: 048
     Dates: start: 20180228, end: 20180313
  8. CAPECITABINE [Suspect]
     Active Substance: CAPECITABINE
     Dosage: 4300 MG, QD (PHARMACEUTICAL DOSE FORM: 245)
     Route: 048
     Dates: start: 20180321, end: 20180403
  9. CAPECITABINE [Suspect]
     Active Substance: CAPECITABINE
     Dosage: 4300 MG, QD (PHARMACEUTICAL DOSE FORM: 245)
     Route: 048
     Dates: start: 20180321, end: 20180403
  10. CAPECITABINE [Suspect]
     Active Substance: CAPECITABINE
     Dosage: 4300 MG, QD (PHARMACEUTICAL DOSE FORM: 245)
     Route: 048
     Dates: start: 20180321, end: 20180403
  11. CAPECITABINE [Suspect]
     Active Substance: CAPECITABINE
     Dosage: 2300 MG, BID
     Route: 048
  12. CAPECITABINE [Suspect]
     Active Substance: CAPECITABINE
     Dosage: 2150 MG, BID
     Route: 048
     Dates: start: 20180321
  13. LETROZOLE [Suspect]
     Active Substance: LETROZOLE
     Indication: Breast cancer metastatic
     Dosage: 2.5 MG, QD
     Route: 048
     Dates: start: 20170718, end: 20180228
  14. HYALURONIDASE (HUMAN RECOMBINANT) [Suspect]
     Active Substance: HYALURONIDASE (HUMAN RECOMBINANT)
     Indication: Breast cancer metastatic
     Dosage: 600 MG, EVERY 3 WEEKS (PHARMACEUTICAL DOSE FORM: 231)
     Route: 058
     Dates: start: 20180228
  15. HYALURONIDASE (HUMAN RECOMBINANT) [Suspect]
     Active Substance: HYALURONIDASE (HUMAN RECOMBINANT)
     Indication: Product used for unknown indication
     Dosage: 600 MG, ONCE IN EVERY 3 WEEKS
  16. ALTEPLASE [Concomitant]
     Active Substance: ALTEPLASE
     Indication: Infectious pleural effusion
     Dosage: 40 MG, QD (PHARMACEUTICAL DOSE FORM: 230)
     Route: 065
     Dates: start: 20181005, end: 20181007
  17. AMOXICILLIN [Concomitant]
     Active Substance: AMOXICILLIN
  18. BENZYDAMINE [Concomitant]
     Active Substance: BENZYDAMINE
     Dosage: 10 ML
     Route: 061
     Dates: start: 20180320, end: 20180627
  19. CASPOFUNGIN [Concomitant]
     Active Substance: CASPOFUNGIN
  20. COCODAMOL [Concomitant]
     Active Substance: ACETAMINOPHEN\CODEINE PHOSPHATE
     Dosage: 530 MG, AS NECESSARY (PHARMACEUTICAL DOSE FORM: 245)
     Route: 048
     Dates: start: 20180215
  21. CYCLIZINE [Concomitant]
     Active Substance: CYCLIZINE
     Dosage: 50 MG
     Route: 048
     Dates: start: 20180216, end: 20180217
  22. DALTEPARIN [Concomitant]
     Active Substance: DALTEPARIN
     Dosage: 5000 IU, QD
     Route: 058
     Dates: start: 20180606, end: 20180607
  23. ENOXAPARIN [Concomitant]
     Active Substance: ENOXAPARIN
  24. FLUCLOXACILLIN [Concomitant]
     Active Substance: FLUCLOXACILLIN
     Indication: Infectious pleural effusion
     Dosage: 2000 MG, QD
     Route: 048
     Dates: start: 20181008, end: 20181017
  25. FLUCLOXACILLIN [Concomitant]
     Active Substance: FLUCLOXACILLIN
     Dosage: 4 G, QD
     Route: 042
     Dates: start: 20190107, end: 20190110
  26. FLUCLOXACILLIN [Concomitant]
     Active Substance: FLUCLOXACILLIN
     Dosage: 2000 MG, QD
     Route: 048
     Dates: start: 20180924, end: 20181004
  27. FLUCLOXACILLIN [Concomitant]
     Active Substance: FLUCLOXACILLIN
     Dosage: 2000 MG, QD
     Route: 048
     Dates: start: 20190117
  28. FLUCLOXACILLIN [Concomitant]
     Active Substance: FLUCLOXACILLIN
     Dosage: 1000 MG, QD (PHARMACEUTICAL DOSE FORM: 5)
     Route: 048
     Dates: start: 20181018, end: 20181115
  29. FLUCLOXACILLIN [Concomitant]
     Active Substance: FLUCLOXACILLIN
     Dosage: 2000 MG, QD
     Route: 048
     Dates: start: 20180316, end: 20180330
  30. FLUCLOXACILLIN [Concomitant]
     Active Substance: FLUCLOXACILLIN
     Dosage: 4 G, QD
     Route: 048
     Dates: start: 20190110, end: 20190116
  31. FLUCLOXACILLIN [Concomitant]
     Active Substance: FLUCLOXACILLIN
     Dosage: 4 G, QD
     Route: 042
     Dates: start: 20181005, end: 20181008
  32. FLUCLOXACILLIN [Concomitant]
     Active Substance: FLUCLOXACILLIN
     Dosage: 4 G, QD (PHARMACEUTICAL DOSE FORM: 5)
     Route: 048
     Dates: start: 201806, end: 201806
  33. LOPERAMIDE [Concomitant]
     Active Substance: LOPERAMIDE
     Dosage: 2 MG, AS NECESSARY
     Route: 048
     Dates: start: 20180320
  34. OMEPRAZOLE [Concomitant]
     Active Substance: OMEPRAZOLE
  35. ONDANSETRON [Concomitant]
     Active Substance: ONDANSETRON
  36. ORAMORPH SR SUSTAINED RELEASE [Concomitant]
     Active Substance: MORPHINE SULFATE
     Indication: Analgesic therapy
     Dosage: 5 MG, QD
     Route: 048
     Dates: start: 20180604, end: 20180605
  37. ACETAMINOPHEN [Concomitant]
     Active Substance: ACETAMINOPHEN
     Dosage: 1 G, AS NECESSARY
     Route: 048
     Dates: start: 20180129
  38. PULMOZYME [Concomitant]
     Active Substance: DORNASE ALFA
     Indication: Infectious pleural effusion
     Dosage: 10 MG, QD
     Route: 065
     Dates: start: 20190107, end: 20190110
  39. PULMOZYME [Concomitant]
     Active Substance: DORNASE ALFA
     Dosage: 20 MG, QD (PHARMACEUTICAL DOSE FORM: 204)
     Route: 065
     Dates: start: 20181005, end: 20181007
  40. POLYETHYLENE GLYCOL 3350\POTASSIUM CHLORIDE\SODIUM BICARBONATE\SODIUM [Concomitant]
     Active Substance: POLYETHYLENE GLYCOL 3350\POTASSIUM CHLORIDE\SODIUM BICARBONATE\SODIUM CHLORIDE
  41. PROCHLORPERAZINE MALEATE [Concomitant]
     Active Substance: PROCHLORPERAZINE MALEATE
  42. METRONIDAZOLE [Concomitant]
     Active Substance: METRONIDAZOLE
     Indication: Infectious pleural effusion
     Dosage: 500 MG, TID

REACTIONS (2)
  - Device related infection [Recovered/Resolved with Sequelae]
  - Off label use [Unknown]

NARRATIVE: CASE EVENT DATE: 20180603
